FAERS Safety Report 5723914-9 (Version None)
Quarter: 2008Q2

REPORT INFORMATION
  Report Type: 
  Country: None (occurrence: None)
  Receive Date: 20080428
  Receipt Date: 20080415
  Transmission Date: 20081010
  Serious: Yes (Death, Other)
  Sender: FDA-Public Use
  Company Number: 163-21880-08030165

PATIENT
  Age: 86 Year
  Sex: Male

DRUGS (2)
  1. REVLIMID [Suspect]
     Indication: 5Q-SYNDROME
     Dosage: 10 MG, 1 IN 1 D, ORAL
     Route: 048
     Dates: start: 20071115, end: 20080101
  2. REVLIMID [Suspect]
     Indication: CYTOGENETIC ANALYSIS ABNORMAL
     Dosage: 10 MG, 1 IN 1 D, ORAL
     Route: 048
     Dates: start: 20071115, end: 20080101

REACTIONS (3)
  - ACUTE MYELOID LEUKAEMIA [None]
  - DISEASE PROGRESSION [None]
  - MYELODYSPLASTIC SYNDROME [None]
